FAERS Safety Report 12104489 (Version 1)
Quarter: 2016Q1

REPORT INFORMATION
  Report Type: Spontaneous
  Country: CN (occurrence: CN)
  Receive Date: 20160223
  Receipt Date: 20160223
  Transmission Date: 20160526
  Serious: Yes (Other)
  Sender: FDA-Public Use
  Company Number: CN-PFIZER INC-2016095933

PATIENT
  Age: 76 Year
  Sex: Male
  Weight: 62.5 kg

DRUGS (4)
  1. PHARMORUBICIN [Suspect]
     Active Substance: EPIRUBICIN
     Indication: NASOPHARYNGEAL CANCER
     Dosage: 50 MG, 1X/DAY, D1 AND D2
     Route: 041
     Dates: start: 20150708, end: 20150709
  2. VINCRISTINE [Suspect]
     Active Substance: VINCRISTINE
     Dosage: 2 MG, D1
  3. CYCLOPHOSPHAMIDE. [Suspect]
     Active Substance: CYCLOPHOSPHAMIDE
     Indication: NASOPHARYNGEAL CANCER
     Dosage: 0.8 D1
  4. PREDNISONE. [Suspect]
     Active Substance: PREDNISONE
     Dosage: 80MG*7D

REACTIONS (7)
  - Metabolic acidosis [Unknown]
  - Agranulocytosis [Not Recovered/Not Resolved]
  - Pyrexia [Unknown]
  - Platelet count decreased [Not Recovered/Not Resolved]
  - Atrial fibrillation [Recovered/Resolved]
  - Shock [Unknown]
  - Diarrhoea [Unknown]

NARRATIVE: CASE EVENT DATE: 20150717
